FAERS Safety Report 16312916 (Version 1)
Quarter: 2019Q2

REPORT INFORMATION
  Report Type: Spontaneous
  Country: US (occurrence: US)
  Receive Date: 20190515
  Receipt Date: 20190515
  Transmission Date: 20190711
  Serious: No
  Sender: FDA-Public Use
  Company Number: US-GLAXOSMITHKLINE-US2019083030

PATIENT
  Age: 68 Year
  Sex: Male

DRUGS (1)
  1. FLONASE [Suspect]
     Active Substance: FLUTICASONE PROPIONATE
     Indication: HYPERSENSITIVITY
     Dosage: UNK (TWO SPRAY AT EACH NOSTRIL), BID
     Dates: start: 201905

REACTIONS (4)
  - Inappropriate schedule of product administration [Unknown]
  - Oropharyngeal discolouration [Not Recovered/Not Resolved]
  - Overdose [Unknown]
  - Oropharyngeal discomfort [Not Recovered/Not Resolved]

NARRATIVE: CASE EVENT DATE: 201905
